FAERS Safety Report 6467325-X (Version None)
Quarter: 2009Q4

REPORT INFORMATION
  Report Type: 
  Country: None (occurrence: None)
  Receive Date: 20091202
  Receipt Date: 20091124
  Transmission Date: 20100525
  Serious: Yes (Disabling)
  Sender: FDA-Public Use
  Company Number: US-ELI_LILLY_AND_COMPANY-US200911000071

PATIENT
  Sex: Female

DRUGS (32)
  1. HUMATROPE [Suspect]
     Indication: LYMPHOCYTIC HYPOPHYSITIS
     Dosage: 0.1 MG, DAILY (1/D) 1 CLICK
     Route: 058
     Dates: start: 20040101
  2. HUMATROPE [Suspect]
     Dosage: 0.4 MG, DAILY (1/D)
     Route: 058
  3. HUMATROPE [Suspect]
     Dosage: 0.2 MG, DAILY (1/D)
     Route: 058
  4. HYDROCHLOROTHIAZIDE [Concomitant]
     Dosage: 25 MG, DAILY (1/D)
  5. PROTONIX [Concomitant]
     Dosage: 40 MG, 2/D
  6. ZANTAC [Concomitant]
     Dosage: 300 MG, AS NEEDED
  7. SYNTHROID [Concomitant]
     Dosage: 50 MG, 5/W
  8. SYNTHROID [Concomitant]
     Dosage: 75 MG, 2/W
  9. CELEBREX [Concomitant]
     Dosage: 200 MG, DAILY (1/D)
  10. VITAMIN D [Concomitant]
     Dosage: 50000 IU, OTHER
  11. POLYGAM S/D [Concomitant]
     Dosage: 35 G, MONTHLY (1/M)
     Route: 042
  12. ASPIRIN [Concomitant]
     Dosage: 81 MG, DAILY (1/D)
  13. CORMAX [Concomitant]
     Dosage: UNK, AS NEEDED
  14. TAZORAC [Concomitant]
     Dosage: UNK, AS NEEDED
  15. TRICOR [Concomitant]
     Dosage: 145 MG, EACH EVENING
  16. CYMBALTA [Concomitant]
     Dosage: 60 MG, DAILY (1/D)
  17. LIDODERM [Concomitant]
     Dosage: UNK, AS NEEDED
  18. VAGIFEM [Concomitant]
     Dosage: 25 UG, 3/W
  19. LYRICA [Concomitant]
     Dosage: 75 MG, 2/D
     Dates: end: 20070929
  20. LYRICA [Concomitant]
     Dosage: 100 MG, 2/D
     Dates: start: 20070929
  21. METANX [Concomitant]
     Dosage: UNK, DAILY (1/D)
  22. FERROUS SULFATE TAB [Concomitant]
     Dosage: 325 MG, DAILY (1/D)
  23. DITROPAN XL [Concomitant]
     Dosage: 5 MG, DAILY (1/D)
  24. OPANA [Concomitant]
     Dosage: 5 MG, AS NEEDED
  25. VITAMIN E /00110501/ [Concomitant]
     Dosage: 400 IU, AS NEEDED
  26. CENTRUM SILVER [Concomitant]
     Dosage: UNK, DAILY (1/D)
  27. ASCORBIC ACID [Concomitant]
     Dosage: 1000 MG, DAILY (1/D)
  28. OSCAL 500-D [Concomitant]
     Dosage: UNK, DAILY (1/D)
  29. MELATONIN [Concomitant]
     Dosage: 3 MG, EACH EVENING
  30. MAGNESIUM OXIDE [Concomitant]
     Dosage: 800 MG, EACH EVENING
  31. AVAPRO [Concomitant]
     Dosage: 300 MG, DAILY (1/D)
  32. EVOXAC [Concomitant]
     Dosage: 30 MG, 3/D

REACTIONS (6)
  - FOOT DEFORMITY [None]
  - MUSCULAR WEAKNESS [None]
  - NEUROPATHIC ARTHROPATHY [None]
  - NEUROPATHY PERIPHERAL [None]
  - OFF LABEL USE [None]
  - SKIN ULCER [None]
